FAERS Safety Report 25347711 (Version 2)
Quarter: 2025Q3

REPORT INFORMATION
  Report Type: Spontaneous
  Country: EU (occurrence: EU)
  Receive Date: 20250522
  Receipt Date: 20250802
  Transmission Date: 20251020
  Serious: Yes (Hospitalization)
  Sender: ALEXION PHARMACEUTICALS
  Company Number: None

PATIENT
  Age: 82 Year
  Sex: Female
  Weight: 64 kg

DRUGS (2)
  1. DAPAGLIFLOZIN [Suspect]
     Active Substance: DAPAGLIFLOZIN
     Indication: Cardiac failure
     Dates: start: 20250418, end: 20250428
  2. EPLERENONE [Concomitant]
     Active Substance: EPLERENONE
     Indication: Cardiac failure
     Route: 065

REACTIONS (2)
  - Dehydration [Unknown]
  - Diarrhoea [Recovered/Resolved]

NARRATIVE: CASE EVENT DATE: 20250418
